FAERS Safety Report 7124975-5 (Version None)
Quarter: 2010Q4

REPORT INFORMATION
  Report Type: 
  Country: None (occurrence: None)
  Receive Date: 20101129
  Receipt Date: 20101116
  Transmission Date: 20110411
  Serious: Yes (Hospitalization, Other)
  Sender: FDA-Public Use
  Company Number: JP-MILLENNIUM PHARMACEUTICALS, INC.-2010-05791

PATIENT

DRUGS (15)
  1. VELCADE [Suspect]
     Indication: MULTIPLE MYELOMA
     Dosage: 2.1 MG, CYCLIC
     Route: 042
     Dates: start: 20100412, end: 20100415
  2. MELPHALAN HYDROCHLORIDE [Concomitant]
     Indication: MULTIPLE MYELOMA
     Dosage: 12 MG, UNK
     Route: 048
     Dates: start: 20100412
  3. PRELONE [Concomitant]
     Indication: MULTIPLE MYELOMA
     Dosage: 100 MG, UNK
     Route: 048
     Dates: start: 20100412
  4. GASTER D [Concomitant]
     Dosage: 20 MG, UNK
     Route: 048
     Dates: start: 20100406
  5. AMLODIPINE [Concomitant]
     Dosage: 2.5 MG, UNK
     Route: 048
     Dates: start: 20100406
  6. ZYLORIC                            /00003301/ [Concomitant]
     Indication: PROPHYLAXIS
     Dosage: 200 MG, UNK
     Route: 048
     Dates: start: 20100411
  7. BACTRIM [Concomitant]
     Indication: PROPHYLAXIS
     Dosage: UNK
     Route: 048
     Dates: start: 20100411
  8. ITRIZOLE [Concomitant]
     Indication: PROPHYLAXIS
     Dosage: 20 ML, UNK
     Route: 048
     Dates: start: 20100411
  9. VALTREX [Concomitant]
     Indication: PROPHYLAXIS
     Dosage: 500 MG, UNK
     Route: 048
     Dates: start: 20100411
  10. LEVEMIR [Concomitant]
     Indication: HYPOGLYCAEMIA
     Dosage: UNK
     Route: 058
     Dates: start: 20100412
  11. NOVORAPID [Concomitant]
     Indication: HYPOGLYCAEMIA
     Dosage: UNK
     Route: 058
     Dates: start: 20100412
  12. CODEINE PHOSPHATE [Concomitant]
     Indication: PAIN
     Dosage: UNK
     Route: 048
     Dates: start: 20100414
  13. MIYA-BM [Concomitant]
     Indication: DIARRHOEA
     Dosage: UNK
     Route: 048
     Dates: start: 20100417
  14. POTASSIUM CHLORIDE [Concomitant]
     Indication: DIARRHOEA
     Dosage: UNK
     Route: 042
     Dates: start: 20100417
  15. VITAMEDIN INTRAVENOUS [Concomitant]
     Indication: DIARRHOEA
     Dosage: UNK
     Route: 042
     Dates: start: 20100417

REACTIONS (8)
  - CHEST DISCOMFORT [None]
  - CORONARY ARTERY STENOSIS [None]
  - DIARRHOEA [None]
  - DRUG ERUPTION [None]
  - HYPERGLYCAEMIA [None]
  - HYPOAESTHESIA [None]
  - ILEUS PARALYTIC [None]
  - PYREXIA [None]
